FAERS Safety Report 4422007-0 (Version None)
Quarter: 2004Q3

REPORT INFORMATION
  Report Type: 
  Country: None (occurrence: None)
  Receive Date: 20040806
  Receipt Date: 20040806
  Transmission Date: 20050211
  Serious: Yes (Life-Threatening)
  Sender: FDA-Public Use
  Company Number: None

PATIENT
  Age: 70 Year
  Sex: Female

DRUGS (2)
  1. ENOXAPARIN SODIUM [Suspect]
     Dates: start: 20040427, end: 20040429
  2. CLOPIDOGREL [Suspect]

REACTIONS (2)
  - HAEMORRHAGE [None]
  - PULMONARY HAEMORRHAGE [None]
